FAERS Safety Report 12398919 (Version 13)
Quarter: 2021Q3

REPORT INFORMATION
  Report Type: Report from Study
  Country: JP (occurrence: JP)
  Receive Date: 20160524
  Receipt Date: 20210802
  Transmission Date: 20211014
  Serious: Yes (Death, Hospitalization, Other)
  Sender: FDA-Public Use
  Company Number: JP-BRISTOL-MYERS SQUIBB COMPANY-BMS-2015-086623

PATIENT
  Age: 89 Year
  Sex: Female
  Weight: 65 kg

DRUGS (8)
  1. TAKEPRON [Concomitant]
     Active Substance: LANSOPRAZOLE
     Indication: GASTRITIS
     Dosage: 15 MG, QD
     Route: 065
     Dates: start: 20151216, end: 20151221
  2. REBAMIPIDE [Concomitant]
     Active Substance: REBAMIPIDE
     Indication: GASTRITIS
     Dosage: 100 MG, UNK
     Route: 065
     Dates: start: 20151216, end: 20151221
  3. OPDIVO [Suspect]
     Active Substance: NIVOLUMAB
     Indication: MALIGNANT MELANOMA STAGE IV
     Dosage: 2 MG/KG, QD
     Route: 065
     Dates: start: 20160411, end: 20160809
  4. FLUOROMETHOLONE. [Concomitant]
     Active Substance: FLUOROMETHOLONE
     Indication: CONJUNCTIVITIS
     Dosage: 1 DF, UNK
     Route: 065
  5. IPILIMUMAB [Suspect]
     Active Substance: IPILIMUMAB
     Indication: MALIGNANT MELANOMA STAGE IV
     Dosage: 3 MG/KG, Q3WK
     Route: 041
     Dates: start: 20151105, end: 20160218
  6. IRBETAN [Concomitant]
     Active Substance: IRBESARTAN
     Indication: HYPERTENSION
     Dosage: 100 MG, UNK
     Route: 065
  7. MEVALOTIN [Concomitant]
     Active Substance: PRAVASTATIN SODIUM
     Indication: HYPERLIPIDAEMIA
     Dosage: 5 MG, UNK
     Route: 065
  8. PROMAC [POLAPREZINC] [Concomitant]
     Active Substance: POLAPREZINC
     Indication: GASTRITIS
     Dosage: 75 MG, UNK
     Route: 065

REACTIONS (6)
  - Hepatic function abnormal [Recovered/Resolved]
  - Hyperthyroidism [Recovered/Resolved]
  - Cholangitis [Recovered/Resolved]
  - Off label use [Unknown]
  - Type 2 diabetes mellitus [Recovered/Resolved]
  - Malignant neoplasm progression [Fatal]

NARRATIVE: CASE EVENT DATE: 20151125
